FAERS Safety Report 7221521-2 (Version None)
Quarter: 2011Q1

REPORT INFORMATION
  Report Type: 
  Country: None (occurrence: None)
  Receive Date: 20110112
  Receipt Date: 20110112
  Transmission Date: 20110831
  Serious: Yes (Other)
  Sender: FDA-Public Use
  Company Number: PHHO2007US03772

PATIENT
  Sex: Female
  Weight: 57.52 kg

DRUGS (10)
  1. PRENATAL VITAMINS [Concomitant]
  2. PHENERGAN [Concomitant]
  3. RISPERDAL [Concomitant]
  4. NU-IRON [Concomitant]
  5. ALBUTEROL [Concomitant]
  6. MACROBID [Concomitant]
  7. ALPRAZOLAM [Concomitant]
  8. STI571/CGP57148B [Suspect]
     Indication: CHRONIC MYELOID LEUKAEMIA
     Dosage: 400 MG, QD
     Route: 048
     Dates: start: 20060802, end: 20070221
  9. ZOLOFT [Concomitant]
  10. BACTRIM DS [Concomitant]

REACTIONS (3)
  - ABORTION SPONTANEOUS [None]
  - PELVIC PAIN [None]
  - DRUG EXPOSURE DURING PREGNANCY [None]
